FAERS Safety Report 6071870-9 (Version None)
Quarter: 2009Q1

REPORT INFORMATION
  Report Type: 
  Country: None (occurrence: None)
  Receive Date: 20090210
  Receipt Date: 20090203
  Transmission Date: 20090719
  Serious: Yes (Disabling)
  Sender: FDA-Public Use
  Company Number: US-BAYER-200910350BCC

PATIENT
  Age: 79 Year
  Sex: Female

DRUGS (4)
  1. ASPIRIN [Suspect]
     Indication: MYOCARDIAL INFARCTION
     Dosage: TOTAL DAILY DOSE: 81 MG
     Route: 048
  2. PLAVIX [Suspect]
     Dosage: TOTAL DAILY DOSE: 75 MG
     Route: 048
     Dates: start: 20070501
  3. CILOSTAZOL [Concomitant]
  4. OLMESARTAN MEDOXOMIL [Concomitant]

REACTIONS (4)
  - BALANCE DISORDER [None]
  - CONFUSIONAL STATE [None]
  - INCREASED TENDENCY TO BRUISE [None]
  - MUSCULAR WEAKNESS [None]
